FAERS Safety Report 9851379 (Version 2)
Quarter: 2016Q1

REPORT INFORMATION
  Report Type: Report from Study
  Country: US (occurrence: US)
  Receive Date: 20140129
  Receipt Date: 20160307
  Transmission Date: 20160526
  Serious: Yes (Hospitalization)
  Sender: FDA-Public Use
  Company Number: US-ROCHE-1340463

PATIENT
  Sex: Female

DRUGS (6)
  1. CATHFLO ACTIVASE [Suspect]
     Active Substance: ALTEPLASE
     Indication: GRAFT COMPLICATION
     Dosage: DATE OF TREATMENT: 24/NOV/2013
     Route: 065
  2. CATHFLO ACTIVASE [Suspect]
     Active Substance: ALTEPLASE
     Indication: IMPLANT SITE REACTION
     Route: 065
  3. CATHFLO ACTIVASE [Suspect]
     Active Substance: ALTEPLASE
     Indication: PRODUCT USE ISSUE
  4. TNKASE [Concomitant]
     Active Substance: TENECTEPLASE
     Dosage: DATE OF TREATMENT: 11/JUL/2013
     Route: 065
  5. CATHFLO ACTIVASE [Suspect]
     Active Substance: ALTEPLASE
     Indication: COMPLICATION ASSOCIATED WITH DEVICE
     Dosage: 1 MG 1 ML?DATE OF TREATMENT: 11/JUL/2013
     Route: 040
  6. CATHFLO ACTIVASE [Suspect]
     Active Substance: ALTEPLASE
     Indication: ANAEMIA

REACTIONS (1)
  - Anaemia [Unknown]
